FAERS Safety Report 21889772 (Version 1)
Quarter: 2023Q1

REPORT INFORMATION
  Report Type: Spontaneous
  Country: US (occurrence: None)
  Receive Date: 20230119
  Receipt Date: 20230119
  Transmission Date: 20230417
  Serious: No
  Sender: FDA-Public Use
  Company Number: None

PATIENT
  Age: 19 Year
  Sex: Female

DRUGS (2)
  1. ADAPALENE [Suspect]
     Active Substance: ADAPALENE
  2. TRETINOIN [Suspect]
     Active Substance: TRETINOIN

REACTIONS (1)
  - Treatment failure [None]

NARRATIVE: CASE EVENT DATE: 20230119
